FAERS Safety Report 20194798 (Version 1)
Quarter: 2021Q4

REPORT INFORMATION
  Report Type: Spontaneous
  Country: US (occurrence: None)
  Receive Date: 20211216
  Receipt Date: 20211216
  Transmission Date: 20220303
  Serious: Yes (Other)
  Sender: FDA-Public Use
  Company Number: None

PATIENT
  Age: 80 Year
  Sex: Female
  Weight: 63.3 kg

DRUGS (1)
  1. KYMRIAH [Suspect]
     Active Substance: TISAGENLECLEUCEL
     Indication: Follicular lymphoma
     Dosage: OTHER FREQUENCY : ONCE;?
     Route: 042
     Dates: start: 20211115, end: 20211115

REACTIONS (8)
  - Cough [None]
  - Cytokine release syndrome [None]
  - Dizziness [None]
  - Diarrhoea [None]
  - Pollakiuria [None]
  - Cytomegalovirus test positive [None]
  - Arthralgia [None]
  - Headache [None]

NARRATIVE: CASE EVENT DATE: 20211118
